FAERS Safety Report 5165619-1 (Version None)
Quarter: 2006Q4

REPORT INFORMATION
  Report Type: 
  Country: None (occurrence: None)
  Receive Date: 20061124
  Receipt Date: 20061110
  Transmission Date: 20070319
  Serious: Yes (Disabling)
  Sender: FDA-Public Use
  Company Number: 149827ISR

PATIENT
  Age: 72 Year
  Sex: Male

DRUGS (2)
  1. PREDNISOLONE [Suspect]
     Indication: KERATITIS HERPETIC
     Dates: start: 20040601
  2. TIMOLOL MALEATE [Suspect]
     Indication: KERATITIS HERPETIC
     Dosage: 2 UNKNOWN (1 UNKNOWN, 2 IN 1 D)
     Dates: start: 20040604

REACTIONS (2)
  - BLINDNESS [None]
  - CORNEAL DEPOSITS [None]
